FAERS Safety Report 8427891-1 (Version None)
Quarter: 2012Q2

REPORT INFORMATION
  Report Type: 
  Country: None (occurrence: None)
  Receive Date: 20120611
  Receipt Date: 20120608
  Transmission Date: 20120825
  Serious: Yes (Hospitalization, Other)
  Sender: FDA-Public Use
  Company Number: US-ROCHE-1075577

PATIENT
  Sex: Female

DRUGS (6)
  1. CIPROFLOXACIN [Concomitant]
  2. LISINOPRIL [Concomitant]
  3. METOPROLOL TARTRATE [Concomitant]
  4. GLUCOSAMINE CHONDROITIN COMPLEX [Concomitant]
  5. PLAVIX [Concomitant]
  6. LUCENTIS [Suspect]
     Indication: AGE-RELATED MACULAR DEGENERATION
     Route: 050
     Dates: start: 20120503

REACTIONS (2)
  - MYOCARDIAL INFARCTION [None]
  - CEREBROVASCULAR ACCIDENT [None]
